FAERS Safety Report 10102308 (Version 1)
Quarter: 2014Q2

REPORT INFORMATION
  Report Type: Spontaneous
  Country: US (occurrence: None)
  Receive Date: 20140423
  Receipt Date: 20140423
  Transmission Date: 20141212
  Serious: Yes (Hospitalization, Other)
  Sender: FDA-Public Use
  Company Number: None

PATIENT
  Age: 72 Year
  Sex: Female

DRUGS (10)
  1. LETAIRIS [Suspect]
     Indication: PULMONARY HYPERTENSION
     Dosage: 1 DOSE
     Route: 048
     Dates: start: 20140310
  2. LETAIRIS [Concomitant]
  3. SILDENAFIL [Concomitant]
  4. METOPROLOL [Concomitant]
  5. LISINOPRIL [Concomitant]
  6. CLONIDINE [Concomitant]
  7. LORAZEPAM [Concomitant]
  8. K-TAB [Concomitant]
  9. LEVOTHYROXINE [Concomitant]
  10. CLONIDINE [Concomitant]

REACTIONS (4)
  - Asthenia [None]
  - Dizziness [None]
  - Oedema peripheral [None]
  - Bradycardia [None]
